FAERS Safety Report 4677992-9 (Version None)
Quarter: 2005Q2

REPORT INFORMATION
  Report Type: 
  Country: None (occurrence: None)
  Receive Date: 20050531
  Receipt Date: 20050228
  Transmission Date: 20051028
  Serious: Yes (Life-Threatening, Hospitalization)
  Sender: FDA-Public Use
  Company Number: 2005CG00452

PATIENT
  Age: 57 Year
  Sex: Male
  Weight: 90 kg

DRUGS (2)
  1. PROPOFOL [Suspect]
     Indication: GENERAL ANAESTHESIA
     Route: 042
     Dates: start: 20050124, end: 20050124
  2. PEG-INTRON [Suspect]
     Indication: MALIGNANT MELANOMA
     Route: 058
     Dates: start: 20040914

REACTIONS (5)
  - BRONCHOSPASM [None]
  - HAEMODIALYSIS [None]
  - HYPERLACTACIDAEMIA [None]
  - RENAL FAILURE [None]
  - URINARY TRACT INFECTION PSEUDOMONAL [None]
